FAERS Safety Report 5872931-7 (Version None)
Quarter: 2008Q3

REPORT INFORMATION
  Report Type: 
  Country: None (occurrence: None)
  Receive Date: 20080905
  Receipt Date: 20080825
  Transmission Date: 20090109
  Serious: Yes (Death)
  Sender: FDA-Public Use
  Company Number: GR-PFIZER INC-2008071158

PATIENT
  Age: 80 Year
  Sex: Female

DRUGS (2)
  1. BEGALIN-P [Suspect]
     Indication: FEBRILE INFECTION
     Route: 042
  2. AMOXIL [Concomitant]

REACTIONS (2)
  - ANAPHYLACTIC SHOCK [None]
  - CARDIAC ARREST [None]
